FAERS Safety Report 8540532-8 (Version None)
Quarter: 2012Q3

REPORT INFORMATION
  Report Type: 
  Country: None (occurrence: None)
  Receive Date: 20120726
  Receipt Date: 20110728
  Transmission Date: 20120928
  Serious: No
  Sender: FDA-Public Use
  Company Number: US-ASTRAZENECA-2011SE45501

PATIENT
  Age: 53 Year
  Sex: Female

DRUGS (2)
  1. SEROQUEL XR [Suspect]
     Route: 048
  2. SEROQUEL [Concomitant]

REACTIONS (3)
  - DRUG DISPENSING ERROR [None]
  - URTICARIA [None]
  - RASH [None]
